FAERS Safety Report 10269051 (Version 2)
Quarter: 2014Q3

REPORT INFORMATION
  Report Type: Spontaneous
  Country: US (occurrence: US)
  Receive Date: 20140630
  Receipt Date: 20140716
  Transmission Date: 20150326
  Serious: No
  Sender: FDA-Public Use
  Company Number: US-GILEAD-2014-0107019

PATIENT
  Sex: Female

DRUGS (2)
  1. LETAIRIS [Suspect]
     Active Substance: AMBRISENTAN
     Indication: PRODUCT USED FOR UNKNOWN INDICATION
     Dosage: 5 MG, QD
     Route: 065
     Dates: start: 201406, end: 20140704
  2. LETAIRIS [Suspect]
     Active Substance: AMBRISENTAN
     Dates: start: 20140626

REACTIONS (5)
  - Nasal congestion [Unknown]
  - Fatigue [Unknown]
  - Constipation [Unknown]
  - Swelling [Unknown]
  - Palpitations [Unknown]
